FAERS Safety Report 5852958-1 (Version None)
Quarter: 2008Q3

REPORT INFORMATION
  Report Type: 
  Country: None (occurrence: None)
  Receive Date: 20080821
  Receipt Date: 20080813
  Transmission Date: 20090109
  Serious: Yes (Life-Threatening)
  Sender: FDA-Public Use
  Company Number: JP-SANOFI-SYNTHELABO-A01200807007

PATIENT
  Sex: Female
  Weight: 72 kg

DRUGS (11)
  1. KYTRIL [Concomitant]
     Indication: PREMEDICATION
     Route: 042
     Dates: start: 20070320, end: 20070918
  2. FLUOROURACIL [Suspect]
     Dosage: 700 MG/BODY=404.6 MG/M2 IN BOLUS THEN 4050 MG/BODY=2341 MG/M2 AS CONTINUOUS INFUSION
     Route: 040
     Dates: start: 20070320, end: 20070320
  3. FLUOROURACIL [Suspect]
     Dosage: 700 MG/BODY=404.6 MG/M2 IN BOLUS THEN 4050 MG/BODY=2341 MG/M2 AS CONTINUOUS INFUSION
     Route: 041
     Dates: start: 20070320, end: 20070321
  4. ELPLAT [Suspect]
     Indication: COLON CANCER
     Route: 041
     Dates: start: 20070320, end: 20070320
  5. DECADRON SRC [Concomitant]
     Indication: PREMEDICATION
     Route: 042
     Dates: start: 20070320, end: 20070918
  6. BROACT [Concomitant]
     Indication: INFECTION
     Route: 042
     Dates: start: 20070403, end: 20070406
  7. MUCOSTA [Concomitant]
     Indication: GASTRITIS
     Route: 048
     Dates: start: 20070403, end: 20070410
  8. LOXONIN [Concomitant]
     Indication: PYREXIA
     Route: 048
     Dates: start: 20070403, end: 20070410
  9. FLOMOX [Concomitant]
     Indication: INFECTION
     Route: 048
     Dates: start: 20070403, end: 20070410
  10. HERBESSER [Concomitant]
     Indication: HYPERTENSION
     Route: 048
     Dates: start: 20070401, end: 20070718
  11. LEUCOVORIN CALCIUM [Suspect]
     Route: 041
     Dates: start: 20070320, end: 20070320

REACTIONS (1)
  - PERITONITIS [None]
